FAERS Safety Report 11946804 (Version 2)
Quarter: 2016Q1

REPORT INFORMATION
  Report Type: Report from Study
  Country: US (occurrence: US)
  Receive Date: 20160125
  Receipt Date: 20160129
  Transmission Date: 20160526
  Serious: No
  Sender: FDA-Public Use
  Company Number: US-AMGEN-USASL2015134400

PATIENT
  Age: 66 Year
  Sex: Female

DRUGS (1)
  1. REPATHA [Suspect]
     Active Substance: EVOLOCUMAB
     Indication: HYPERCHOLESTEROLAEMIA
     Dosage: 140 MG, Q2WK
     Route: 065
     Dates: start: 20151116

REACTIONS (6)
  - Device use error [Unknown]
  - Erythema [Recovered/Resolved]
  - Underdose [Unknown]
  - Injection site swelling [Recovered/Resolved]
  - Alopecia [Unknown]
  - Injection site pain [Unknown]

NARRATIVE: CASE EVENT DATE: 201511
